FAERS Safety Report 5289629-9 (Version None)
Quarter: 2007Q2

REPORT INFORMATION
  Report Type: 
  Country: None (occurrence: None)
  Receive Date: 20070406
  Receipt Date: 20070326
  Transmission Date: 20071010
  Serious: Yes (Hospitalization)
  Sender: FDA-Public Use
  Company Number: 2007CG00499

PATIENT
  Age: 4779 Day
  Sex: Male
  Weight: 40 kg

DRUGS (10)
  1. FOSCAVIR [Suspect]
     Route: 042
     Dates: end: 20070209
  2. OMEPRAZOLE [Suspect]
     Route: 042
  3. SOLU-MEDROL [Suspect]
     Route: 042
  4. GLEEVEC [Suspect]
     Route: 048
     Dates: start: 20070123
  5. PENTASA [Suspect]
     Route: 048
  6. ENTOCORT [Concomitant]
  7. NALBUPHINE [Concomitant]
  8. PLITICAN [Concomitant]
  9. SPORANOX [Concomitant]
  10. TEGELINE [Concomitant]
     Dosage: EVERY 15 DAYS

REACTIONS (1)
  - BLOOD AMYLASE INCREASED [None]
